FAERS Safety Report 5706182-3 (Version None)
Quarter: 2008Q2

REPORT INFORMATION
  Report Type: 
  Country: None (occurrence: None)
  Receive Date: 20080415
  Receipt Date: 20080410
  Transmission Date: 20081010
  Serious: Yes (Hospitalization)
  Sender: FDA-Public Use
  Company Number: ES-PFIZER INC-2008031503

PATIENT
  Age: 29 Year
  Sex: Female

DRUGS (1)
  1. SALAZOPYRINA [Suspect]
     Indication: PSORIATIC ARTHROPATHY
     Dosage: DAILY DOSE:2GRAM-FREQ:DAILY
     Route: 048
     Dates: start: 20070705, end: 20071126

REACTIONS (1)
  - CRYPTOGENIC ORGANISING PNEUMONIA [None]
